FAERS Safety Report 5992830-X (Version None)
Quarter: 2008Q4

REPORT INFORMATION
  Report Type: 
  Country: None (occurrence: None)
  Receive Date: 20081211
  Receipt Date: 20081203
  Transmission Date: 20090506
  Serious: Yes (Other)
  Sender: FDA-Public Use
  Company Number: CA-JNJCH-2008053240

PATIENT
  Sex: Male

DRUGS (2)
  1. SUDAFED COLD AND COUGH EXTRA STRENGTH [Suspect]
     Indication: COUGH
     Dosage: TEXT:1 CAPLET ONCE
     Route: 048
     Dates: start: 20080923, end: 20080923
  2. VENTOLIN [Concomitant]
     Indication: PULMONARY CONGESTION
     Dosage: TEXT:AS NEEDED
     Route: 055

REACTIONS (3)
  - DIZZINESS [None]
  - HAEMORRHAGE [None]
  - LOSS OF CONSCIOUSNESS [None]
